FAERS Safety Report 12567142 (Version 2)
Quarter: 2016Q4

REPORT INFORMATION
  Report Type: Report from Study
  Country: US (occurrence: US)
  Receive Date: 20160718
  Receipt Date: 20161010
  Transmission Date: 20170207
  Serious: Yes (Death, Hospitalization, Other)
  Sender: FDA-Public Use
  Company Number: US-BRISTOL-MYERS SQUIBB COMPANY-BMS-2016-057678

PATIENT
  Age: 66 Year
  Sex: Male
  Weight: 108.1 kg

DRUGS (2)
  1. IPILIMUMAB [Suspect]
     Active Substance: IPILIMUMAB
     Indication: MALIGNANT MELANOMA
     Dosage: 3 MG/KG, Q3WK * 4 DOSES
     Route: 042
     Dates: start: 20130212
  2. IPILIMUMAB [Suspect]
     Active Substance: IPILIMUMAB
     Dosage: 3 MG/KG, Q12WK
     Route: 042
     Dates: start: 20130305

REACTIONS (3)
  - Blood creatinine increased [Unknown]
  - Abdominal pain [Unknown]
  - Gastric perforation [Fatal]

NARRATIVE: CASE EVENT DATE: 20131215
